FAERS Safety Report 11779078 (Version 2)
Quarter: 2015Q4

REPORT INFORMATION
  Report Type: Spontaneous
  Country: US (occurrence: US)
  Receive Date: 20151125
  Receipt Date: 20151207
  Transmission Date: 20160304
  Serious: Yes (Hospitalization, Other)
  Sender: FDA-Public Use
  Company Number: US-KADMON PHARMACEUTICALS, LLC-KAD201511-004129

PATIENT
  Age: 63 Year
  Sex: Male
  Weight: 97.06 kg

DRUGS (7)
  1. ZYTIGA [Concomitant]
     Active Substance: ABIRATERONE ACETATE
  2. LUPRON [Concomitant]
     Active Substance: LEUPROLIDE ACETATE
  3. RIBAVIRIN. [Suspect]
     Active Substance: RIBAVIRIN
     Indication: HEPATITIS C
     Dosage: TABLET
     Route: 048
     Dates: start: 201511, end: 201511
  4. VIEKIRA PAK [Suspect]
     Active Substance: DASABUVIR\OMBITASVIR\PARITAPREVIR\RITONAVIR
     Indication: HEPATITIS C
     Dosage: TABLET
     Route: 048
     Dates: start: 201511, end: 201511
  5. XGEVA [Concomitant]
     Active Substance: DENOSUMAB
  6. PREDNISONE. [Concomitant]
     Active Substance: PREDNISONE
  7. ZOFRAN [Concomitant]
     Active Substance: ONDANSETRON HYDROCHLORIDE

REACTIONS (8)
  - Acute kidney injury [Unknown]
  - Gastrointestinal haemorrhage [Unknown]
  - International normalised ratio increased [Unknown]
  - Coagulopathy [Unknown]
  - Asthenia [Unknown]
  - Hepatic cirrhosis [Unknown]
  - Encephalopathy [Unknown]
  - Arteriovenous malformation [Unknown]

NARRATIVE: CASE EVENT DATE: 201511
